FAERS Safety Report 6217488-6 (Version None)
Quarter: 2009Q2

REPORT INFORMATION
  Report Type: 
  Country: None (occurrence: None)
  Receive Date: 20090608
  Receipt Date: 20081125
  Transmission Date: 20091009
  Serious: No
  Sender: FDA-Public Use
  Company Number: A0758336A

PATIENT
  Age: 41 Year
  Sex: Female

DRUGS (4)
  1. WELLBUTRIN XL [Suspect]
     Indication: DEPRESSION
     Dosage: 300MG PER DAY
     Route: 048
     Dates: start: 20080901, end: 20081001
  2. NORVIR [Concomitant]
  3. UNKNOWN MEDICATION [Concomitant]
     Indication: HEPATITIS C
  4. REYATAZ [Concomitant]

REACTIONS (1)
  - TREMOR [None]
